FAERS Safety Report 10694643 (Version 1)
Quarter: 2015Q1

REPORT INFORMATION
  Report Type: Spontaneous
  Country: US (occurrence: None)
  Receive Date: 20150105
  Receipt Date: 20150105
  Transmission Date: 20150721
  Serious: Yes (Hospitalization, Disabling)
  Sender: FDA-Public Use
  Company Number: None

PATIENT
  Age: 57 Year
  Sex: Male
  Weight: 108.41 kg

DRUGS (14)
  1. GABAPENTIN. [Concomitant]
     Active Substance: GABAPENTIN
  2. FISH OIL [Concomitant]
     Active Substance: FISH OIL
  3. ALLEGRA [Concomitant]
     Active Substance: FEXOFENADINE HYDROCHLORIDE
  4. ALLEGRA [Concomitant]
     Active Substance: FEXOFENADINE HYDROCHLORIDE
  5. DORITIZA [Concomitant]
  6. VITAMIN E [Concomitant]
     Active Substance: .ALPHA.-TOCOPHEROL
  7. LISINOPRIL. [Concomitant]
     Active Substance: LISINOPRIL
  8. METHOCARBAMOL. [Suspect]
     Active Substance: METHOCARBAMOL
     Indication: MUSCLE SPASMS
     Dosage: BY MOUTH
     Dates: start: 20141002, end: 20141205
  9. CINNAMON. [Concomitant]
     Active Substance: CINNAMON
  10. METOPROLOL TARTRATE. [Concomitant]
     Active Substance: METOPROLOL TARTRATE
  11. NEXIUM [Concomitant]
     Active Substance: ESOMEPRAZOLE MAGNESIUM
  12. ALLOPURINOL. [Concomitant]
     Active Substance: ALLOPURINOL
  13. OMEGA 3 [Concomitant]
     Active Substance: OMEGA-3 FATTY ACIDS
  14. DIAZEPAM. [Concomitant]
     Active Substance: DIAZEPAM

REACTIONS (14)
  - Chest discomfort [None]
  - Speech disorder [None]
  - Amnesia [None]
  - Dyspnoea [None]
  - Sleep disorder [None]
  - Lip swelling [None]
  - Confusional state [None]
  - Ocular hyperaemia [None]
  - Eye swelling [None]
  - Melaena [None]
  - Vertigo [None]
  - Mental impairment [None]
  - Mood altered [None]
  - Balance disorder [None]

NARRATIVE: CASE EVENT DATE: 20141002
